FAERS Safety Report 17117684 (Version 3)
Quarter: 2022Q2

REPORT INFORMATION
  Report Type: Spontaneous
  Country: GR (occurrence: GR)
  Receive Date: 20191205
  Receipt Date: 20220503
  Transmission Date: 20220721
  Serious: Yes (Hospitalization, Other)
  Sender: FDA-Public Use
  Company Number: GR-NOVPHSZ-PHHY2019GR160418

PATIENT
  Age: 79 Year
  Sex: Female

DRUGS (5)
  1. ATORVASTATIN [Suspect]
     Active Substance: ATORVASTATIN
     Indication: Dyslipidaemia
     Dosage: UNK
     Route: 065
  2. RAMIPRIL [Suspect]
     Active Substance: RAMIPRIL
     Indication: Hypertension
     Dosage: UNK
     Route: 065
  3. METFORMIN [Concomitant]
     Active Substance: METFORMIN HYDROCHLORIDE
     Indication: Diabetes mellitus
     Dosage: UNK
     Route: 065
  4. DOBUTAMINE [Concomitant]
     Active Substance: DOBUTAMINE HYDROCHLORIDE
     Indication: Product used for unknown indication
     Dosage: UNK
     Route: 065
  5. NOREPINEPHRINE [Concomitant]
     Active Substance: NOREPINEPHRINE
     Indication: Product used for unknown indication
     Dosage: UNK
     Route: 065

REACTIONS (12)
  - Left ventricular dysfunction [Recovering/Resolving]
  - Dilatation intrahepatic duct acquired [Unknown]
  - Stress cardiomyopathy [Recovering/Resolving]
  - Supraventricular tachycardia [Recovered/Resolved]
  - Pancreatic mass [Unknown]
  - Abnormal loss of weight [Unknown]
  - Cholangitis [Unknown]
  - Ventricular hypokinesia [Recovering/Resolving]
  - Hyperbilirubinaemia [Unknown]
  - Cholestasis [Unknown]
  - Jaundice [Unknown]
  - Pyrexia [Unknown]
